FAERS Safety Report 9859228 (Version 1)
Quarter: 2014Q1

REPORT INFORMATION
  Report Type: Spontaneous
  Country: FR (occurrence: FR)
  Receive Date: 20140131
  Receipt Date: 20140131
  Transmission Date: 20141002
  Serious: Yes (Death, Life-Threatening)
  Sender: FDA-Public Use
  Company Number: FR-BRISTOL-MYERS SQUIBB COMPANY-20068425

PATIENT
  Age: 49 Year
  Sex: Male

DRUGS (3)
  1. BARACLUDE TABS 0.5 MG [Suspect]
     Indication: HEPATITIS B VIRUS TEST POSITIVE
     Dosage: 1TAB
     Route: 048
     Dates: start: 200812
  2. GLIVEC [Suspect]
     Indication: CHRONIC MYELOID LEUKAEMIA
     Dosage: TABS
     Route: 048
     Dates: start: 200812
  3. ZOPICLONE [Suspect]
     Indication: INSOMNIA
     Route: 048

REACTIONS (2)
  - Completed suicide [Fatal]
  - Suicide attempt [Recovered/Resolved]
